FAERS Safety Report 19388234 (Version 1)
Quarter: 2021Q2

REPORT INFORMATION
  Report Type: Spontaneous
  Country: US (occurrence: US)
  Receive Date: 20210607
  Receipt Date: 20210607
  Transmission Date: 20210717
  Serious: No
  Sender: FDA-Public Use
  Company Number: US-PERRIGO-21US003499

PATIENT
  Age: 27 Year
  Sex: Male
  Weight: 68.93 kg

DRUGS (3)
  1. VITAMIN B [Concomitant]
     Active Substance: VITAMIN B
     Indication: SUPPLEMENTATION THERAPY
     Dosage: UNK
     Route: 065
  2. MINOXIDIL. [Suspect]
     Active Substance: MINOXIDIL
     Indication: ALOPECIA
     Dosage: UNKNOWN, QD
     Route: 061
     Dates: start: 20210101, end: 20210114
  3. MULTIVITAMINS, PLAIN [Concomitant]
     Active Substance: VITAMINS
     Indication: SUPPLEMENTATION THERAPY
     Dosage: UNK
     Route: 065

REACTIONS (5)
  - Wrong technique in product usage process [Recovered/Resolved]
  - Application site exfoliation [Recovered/Resolved]
  - Inappropriate schedule of product administration [Recovered/Resolved]
  - Application site erythema [Recovered/Resolved]
  - Application site pruritus [Recovered/Resolved]

NARRATIVE: CASE EVENT DATE: 20210101
